FAERS Safety Report 10373924 (Version 1)
Quarter: 2014Q1

REPORT INFORMATION
  Report Type: Spontaneous
  Country: US (occurrence: None)
  Receive Date: 20140306
  Receipt Date: 20140306
  Transmission Date: 20141002
  Serious: Yes (Hospitalization)
  Sender: FDA-Public Use
  Company Number: 163-21880-13012223

PATIENT
  Age: 75 Year
  Sex: Female

DRUGS (4)
  1. REVLIMID [Suspect]
     Indication: PLASMA CELL MYELOMA
     Route: 048
     Dates: start: 20111118
  2. LYRICA (PREGABALIN) (CAPSULES) [Concomitant]
  3. ZOMETA (ZOLEDRONIC ACID) (INJECTION) [Concomitant]
  4. MEGACE ES (MEGESTROL ACETATE) (SUSPENSION) [Concomitant]

REACTIONS (2)
  - Lethargy [None]
  - Dysphagia [None]
